FAERS Safety Report 7988700-8 (Version None)
Quarter: 2011Q4

REPORT INFORMATION
  Report Type: 
  Country: None (occurrence: None)
  Receive Date: 20111218
  Receipt Date: 20111206
  Transmission Date: 20120403
  Serious: Yes (Death)
  Sender: FDA-Public Use
  Company Number: HU-ELI_LILLY_AND_COMPANY-HU201110003789

PATIENT
  Age: 39 Year
  Sex: Female

DRUGS (3)
  1. OLANZAPINE [Suspect]
     Indication: SCHIZOPHRENIA, PARANOID TYPE
     Dosage: 300 MG, EVERY 2 WEEKS
     Route: 030
     Dates: start: 20110427
  2. AKINETON [Concomitant]
     Dosage: 1 TAB, QD
  3. DEPAKENE [Concomitant]
     Dosage: 600 MG, UNK

REACTIONS (4)
  - CONGESTIVE CARDIOMYOPATHY [None]
  - PULMONARY OEDEMA [None]
  - CARDIAC FAILURE [None]
  - DISCOMFORT [None]
